FAERS Safety Report 9124733 (Version 1)
Quarter: 2013Q1

REPORT INFORMATION
  Report Type: Spontaneous
  Country: US (occurrence: US)
  Receive Date: 20130227
  Receipt Date: 20130227
  Transmission Date: 20140127
  Serious: Yes (Hospitalization, Other)
  Sender: FDA-Public Use
  Company Number: US-TEVA-387579USA

PATIENT
  Age: 0 Year
  Sex: Female

DRUGS (4)
  1. COPAXONE [Suspect]
     Indication: MULTIPLE SCLEROSIS
     Route: 065
  2. BACLOFEN [Suspect]
     Indication: MULTIPLE SCLEROSIS
  3. INTROVALE [Suspect]
     Indication: CONTRACEPTION
  4. PRENATAL VITAMINS [Concomitant]

REACTIONS (3)
  - Apnoea [Unknown]
  - Heart rate decreased [Unknown]
  - Maternal drugs affecting foetus [None]
